FAERS Safety Report 19258528 (Version 1)
Quarter: 2021Q2

REPORT INFORMATION
  Report Type: Spontaneous
  Country: GB (occurrence: GB)
  Receive Date: 20210514
  Receipt Date: 20210514
  Transmission Date: 20210717
  Serious: Yes (Disabling, Other)
  Sender: FDA-Public Use
  Company Number: GB-ABBVIE-21K-167-3905574-00

PATIENT
  Age: 33 Year
  Sex: Female
  Weight: 103 kg

DRUGS (1)
  1. HUMIRA [Suspect]
     Active Substance: ADALIMUMAB
     Indication: PRODUCT USED FOR UNKNOWN INDICATION
     Dosage: 40MG/0.4ML
     Route: 058
     Dates: end: 20210315

REACTIONS (4)
  - Multiple sclerosis [Not Recovered/Not Resolved]
  - Spinal cord injury [Unknown]
  - Neurological symptom [Unknown]
  - White matter lesion [Unknown]

NARRATIVE: CASE EVENT DATE: 202012
